FAERS Safety Report 12705304 (Version 1)
Quarter: 2016Q3

REPORT INFORMATION
  Report Type: Spontaneous
  Country: US (occurrence: None)
  Receive Date: 20160831
  Receipt Date: 20160831
  Transmission Date: 20161109
  Serious: No
  Sender: FDA-Public Use
  Company Number: None

PATIENT
  Age: 10 Year
  Sex: Male
  Weight: 31.3 kg

DRUGS (10)
  1. CONCERTA [Concomitant]
     Active Substance: METHYLPHENIDATE HYDROCHLORIDE
  2. RITALIN [Concomitant]
     Active Substance: METHYLPHENIDATE HYDROCHLORIDE
  3. FISH OIL [Concomitant]
     Active Substance: FISH OIL
  4. NOVOLOG [Concomitant]
     Active Substance: INSULIN ASPART
  5. VITAMIN C [Concomitant]
     Active Substance: ASCORBIC ACID
  6. GUANFACINE ER [Suspect]
     Active Substance: GUANFACINE
     Indication: ATTENTION DEFICIT/HYPERACTIVITY DISORDER
     Dosage: IN THE MORNING TAKEN BY MOUTH
     Route: 048
  7. ZINC [Concomitant]
     Active Substance: ZINC\ZINC CHLORIDE
  8. CGM [Concomitant]
  9. MAGNEASIUM [Concomitant]
  10. INSULIN PUMP [Concomitant]
     Active Substance: INSULIN NOS

REACTIONS (2)
  - Drug ineffective [None]
  - Product substitution issue [None]
